FAERS Safety Report 11381936 (Version 2)
Quarter: 2015Q4

REPORT INFORMATION
  Report Type: Other
  Country: AU (occurrence: AU)
  Receive Date: 20150814
  Receipt Date: 20151217
  Transmission Date: 20160304
  Serious: Yes (Hospitalization, Other)
  Sender: FDA-Public Use
  Company Number: AU-GE HEALTHCARE MEDICAL DIAGNOSTICS-OSCN-PR-1508S-0165

PATIENT
  Age: 63 Year
  Sex: Female

DRUGS (3)
  1. GADOLINIUM (UNSPECIFIED) [Suspect]
     Active Substance: GADOLINIUM
     Indication: PRODUCT USED FOR UNKNOWN INDICATION
     Dosage: DOSE NOT REPORTED
     Route: 065
     Dates: start: 201312, end: 201312
  2. GADOLINIUM (UNSPECIFIED) [Suspect]
     Active Substance: GADOLINIUM
     Dosage: DOSE NOT REPORTED
     Route: 065
     Dates: start: 201410, end: 201410
  3. GADOLINIUM (UNSPECIFIED) [Suspect]
     Active Substance: GADOLINIUM
     Indication: DIAGNOSTIC PROCEDURE
     Dosage: DOSE NOT REPORTED
     Route: 065
     Dates: start: 201403, end: 201403

REACTIONS (10)
  - Pain [Unknown]
  - Burning sensation [Unknown]
  - Malaise [Unknown]
  - Quadriparesis [Unknown]
  - Coordination abnormal [Unknown]
  - Gait disturbance [Unknown]
  - Drug clearance decreased [Unknown]
  - Quadriparesis [Unknown]
  - Asthenia [Unknown]
  - Emotional disorder [Unknown]

NARRATIVE: CASE EVENT DATE: 201312
